FAERS Safety Report 8205182-1 (Version None)
Quarter: 2012Q1

REPORT INFORMATION
  Report Type: 
  Country: None (occurrence: None)
  Receive Date: 20120313
  Receipt Date: 20120301
  Transmission Date: 20120608
  Serious: Yes (Hospitalization)
  Sender: FDA-Public Use
  Company Number: ES-ROCHE-1045012

PATIENT
  Age: 44 Year
  Sex: Male
  Weight: 80 kg

DRUGS (4)
  1. PEGINTERFERON ALFA-2A [Suspect]
     Indication: HEPATITIS C
     Route: 058
     Dates: start: 20110323
  2. ANACLOSIL [Concomitant]
     Route: 048
     Dates: start: 20110304
  3. COPEGUS [Suspect]
     Indication: HEPATITIS C
     Route: 048
     Dates: start: 20110323
  4. ATORVASTATIN CALCIUM [Concomitant]
     Route: 048
     Dates: start: 20110719

REACTIONS (4)
  - PULMONARY EMBOLISM [None]
  - CUSHING'S SYNDROME [None]
  - DEEP VEIN THROMBOSIS [None]
  - PNEUMONIA [None]
